FAERS Safety Report 12215235 (Version 2)
Quarter: 2016Q2

REPORT INFORMATION
  Report Type: Spontaneous
  Country: US (occurrence: US)
  Receive Date: 20160328
  Receipt Date: 20160531
  Transmission Date: 20160815
  Serious: No
  Sender: FDA-Public Use
  Company Number: US-ASTRAZENECA-2016SE19598

PATIENT
  Age: 24121 Day
  Sex: Female
  Weight: 134.7 kg

DRUGS (2)
  1. SINGULAIR [Concomitant]
     Active Substance: MONTELUKAST SODIUM
     Indication: ASTHMA
     Route: 048
     Dates: start: 20140822
  2. PULMICORT FLEXHALER [Suspect]
     Active Substance: BUDESONIDE
     Indication: ASTHMA
     Dosage: 180 MCG 1X120 DOSES, 720 UG 4 PUFFS TWO TIMES A DAY
     Route: 055
     Dates: start: 20110222

REACTIONS (5)
  - Device failure [Unknown]
  - Nasal congestion [Unknown]
  - Alveolitis allergic [Unknown]
  - Dyspnoea [Unknown]
  - Cough [Unknown]

NARRATIVE: CASE EVENT DATE: 20160217
